FAERS Safety Report 5287176-1 (Version None)
Quarter: 2007Q2

REPORT INFORMATION
  Report Type: 
  Country: None (occurrence: None)
  Receive Date: 20070404
  Receipt Date: 20070320
  Transmission Date: 20071010
  Serious: Yes (Hospitalization)
  Sender: FDA-Public Use
  Company Number: FR-PFIZER INC-2007022475

PATIENT
  Age: 73 Year
  Sex: Male

DRUGS (8)
  1. ALDACTONE [Suspect]
     Indication: ESSENTIAL HYPERTENSION
     Route: 048
     Dates: start: 20041115, end: 20070105
  2. CASODEX [Concomitant]
  3. ZOLADEX [Concomitant]
  4. XATRAL [Concomitant]
  5. SYMBICORT [Concomitant]
  6. AIROMIR [Concomitant]
  7. PNEUMOREL [Concomitant]
  8. CETIRIZINE HCL [Concomitant]

REACTIONS (2)
  - ECZEMA [None]
  - TOXIC SKIN ERUPTION [None]
